FAERS Safety Report 9385625 (Version 2)
Quarter: 2013Q3

REPORT INFORMATION
  Report Type: Spontaneous
  Country: ES (occurrence: None)
  Receive Date: 20130701
  Receipt Date: 20130705
  Transmission Date: 20140515
  Serious: Yes (Hospitalization)
  Sender: FDA-Public Use
  Company Number: 2013ES0153

PATIENT
  Age: 68 Year
  Sex: Male

DRUGS (4)
  1. ANAKINRA [Suspect]
     Indication: JUVENILE IDIOPATHIC ARTHRITIS
     Dates: start: 20130206, end: 20130311
  2. CORTICOSTEROIDS (CORTICOSTEROIDS) [Concomitant]
  3. DOLQUINE (HYDROXYCHLOROQUINE SULFATE) (HYDROXYCHLOROQUINE SUFLATE) [Concomitant]
  4. PREDNISONE (PREDNISONE) [Concomitant]

REACTIONS (6)
  - Histiocytosis haematophagic [None]
  - Lung infiltration [None]
  - Pneumonia [None]
  - Injection site reaction [None]
  - Viral infection [None]
  - Lung infection [None]
